FAERS Safety Report 8624379-X (Version None)
Quarter: 2012Q3

REPORT INFORMATION
  Report Type: 
  Country: None (occurrence: None)
  Receive Date: 20120827
  Receipt Date: 20120821
  Transmission Date: 20120928
  Serious: Yes (Hospitalization)
  Sender: FDA-Public Use
  Company Number: US-PFIZER INC-2012205677

PATIENT
  Age: 34 Year
  Sex: Female
  Weight: 61.224 kg

DRUGS (4)
  1. LYRICA [Suspect]
     Dosage: 50 MG, DAILY
     Route: 048
     Dates: start: 20120819, end: 20120820
  2. NORCO [Suspect]
     Indication: PAIN
     Dosage: 20/650 MG, EVERY 4 HRS
     Route: 048
     Dates: start: 20120801
  3. LYRICA [Suspect]
     Indication: FIBROMYALGIA
     Dosage: 50 MG, 2X/DAY
     Route: 048
     Dates: start: 20120727
  4. LYRICA [Suspect]
     Dosage: 50 MG, 4X/DAY
     Route: 048
     Dates: start: 20120801

REACTIONS (4)
  - PAIN [None]
  - SNAKE BITE [None]
  - INCORRECT DRUG DOSAGE FORM ADMINISTERED [None]
  - DRUG INEFFECTIVE [None]
